FAERS Safety Report 10020252 (Version 3)
Quarter: 2014Q2

REPORT INFORMATION
  Report Type: Spontaneous
  Country: US (occurrence: US)
  Receive Date: 20140319
  Receipt Date: 20140428
  Transmission Date: 20141212
  Serious: Yes (Hospitalization)
  Sender: FDA-Public Use
  Company Number: US-BIOGENIDEC-2014BI025050

PATIENT
  Age: 56 Year
  Sex: Female

DRUGS (6)
  1. TYSABRI [Suspect]
     Indication: MULTIPLE SCLEROSIS
     Route: 042
  2. TYSABRI [Suspect]
     Indication: MULTIPLE SCLEROSIS
     Route: 042
     Dates: start: 20140115
  3. AVONEX [Concomitant]
     Route: 030
  4. CELEXA [Concomitant]
  5. WELLBUTRIN [Concomitant]
  6. KLONOPIN [Concomitant]

REACTIONS (45)
  - Vomiting [Not Recovered/Not Resolved]
  - Fall [Recovered/Resolved]
  - Feeling abnormal [Not Recovered/Not Resolved]
  - Neck pain [Recovered/Resolved]
  - Diarrhoea [Recovered/Resolved]
  - Dysuria [Recovered/Resolved]
  - Abdominal pain [Recovered/Resolved]
  - Gait disturbance [Not Recovered/Not Resolved]
  - Joint injury [Not Recovered/Not Resolved]
  - Pain in extremity [Recovered/Resolved]
  - Dysstasia [Recovered/Resolved]
  - General physical health deterioration [Not Recovered/Not Resolved]
  - Hypoaesthesia [Recovered/Resolved]
  - Hypotonia [Recovered/Resolved]
  - Mobility decreased [Recovered/Resolved]
  - Face injury [Recovered/Resolved]
  - Abasia [Not Recovered/Not Resolved]
  - Depression [Unknown]
  - Suicidal ideation [Unknown]
  - Urinary incontinence [Recovered/Resolved]
  - Faecal incontinence [Recovered/Resolved]
  - Visual impairment [Not Recovered/Not Resolved]
  - Hangover [Not Recovered/Not Resolved]
  - Injury [Not Recovered/Not Resolved]
  - Thermal burn [Not Recovered/Not Resolved]
  - Gastrooesophageal reflux disease [Not Recovered/Not Resolved]
  - Retching [Not Recovered/Not Resolved]
  - Weight decreased [Not Recovered/Not Resolved]
  - General symptom [Not Recovered/Not Resolved]
  - Decreased appetite [Not Recovered/Not Resolved]
  - Aphagia [Not Recovered/Not Resolved]
  - Aphasia [Not Recovered/Not Resolved]
  - Libido decreased [Not Recovered/Not Resolved]
  - Anhedonia [Not Recovered/Not Resolved]
  - Adverse drug reaction [Recovered/Resolved]
  - Balance disorder [Not Recovered/Not Resolved]
  - Gastric disorder [Recovered/Resolved]
  - Fatigue [Not Recovered/Not Resolved]
  - Dizziness [Not Recovered/Not Resolved]
  - Drug ineffective [Not Recovered/Not Resolved]
  - Headache [Not Recovered/Not Resolved]
  - Nausea [Not Recovered/Not Resolved]
  - Constipation [Unknown]
  - Asthenia [Not Recovered/Not Resolved]
  - Malaise [Not Recovered/Not Resolved]
